FAERS Safety Report 7400241-5 (Version None)
Quarter: 2011Q2

REPORT INFORMATION
  Report Type: 
  Country: None (occurrence: None)
  Receive Date: 20110407
  Receipt Date: 20110325
  Transmission Date: 20111010
  Serious: Yes (Other)
  Sender: FDA-Public Use
  Company Number: US-ACTELION-A-CH2011-46994

PATIENT
  Age: 56 Year
  Sex: Female

DRUGS (4)
  1. SILDENAFIL [Concomitant]
  2. TRACLEER [Suspect]
     Indication: PULMONARY ARTERIAL HYPERTENSION
     Dosage: UNK
     Route: 048
  3. VENTAVIS [Suspect]
     Indication: PULMONARY ARTERIAL HYPERTENSION
     Route: 055
  4. WARFARIN SODIUM [Concomitant]

REACTIONS (7)
  - HAEMATOCRIT DECREASED [None]
  - LIVER FUNCTION TEST ABNORMAL [None]
  - GANGRENE [None]
  - CONDITION AGGRAVATED [None]
  - AMPUTATION [None]
  - PULMONARY ARTERIAL HYPERTENSION [None]
  - GASTRIC ANTRAL VASCULAR ECTASIA [None]
